FAERS Safety Report 8297974-8 (Version None)
Quarter: 2012Q2

REPORT INFORMATION
  Report Type: 
  Country: None (occurrence: None)
  Receive Date: 20120419
  Receipt Date: 20120413
  Transmission Date: 20120825
  Serious: Yes (Other)
  Sender: FDA-Public Use
  Company Number: US-PFIZER INC-2012081505

PATIENT

DRUGS (5)
  1. FISH OIL [Concomitant]
     Dosage: UNK
  2. ATROPINE SULFATE [Concomitant]
     Dosage: 0.4 MG, UNK
  3. PREMPRO [Suspect]
     Dosage: 0.45-1.5 MG, ONE TABLET DAILY
  4. LISINOPRIL AND HYDROCHLOROTHIAZIDE [Concomitant]
     Dosage: 10-12.5 MG
  5. KETOROLAC TROMETHAMINE [Concomitant]
     Dosage: 60 MG, UNK

REACTIONS (2)
  - POSTMENOPAUSAL HAEMORRHAGE [None]
  - ABDOMINAL PAIN LOWER [None]
